FAERS Safety Report 7171019-5 (Version None)
Quarter: 2010Q4

REPORT INFORMATION
  Report Type: 
  Country: None (occurrence: None)
  Receive Date: 20101217
  Receipt Date: 20101214
  Transmission Date: 20110411
  Serious: Yes (Hospitalization, Other)
  Sender: FDA-Public Use
  Company Number: FR-BRISTOL-MYERS SQUIBB COMPANY-15284003

PATIENT
  Age: 42 Year
  Sex: Male
  Weight: 86 kg

DRUGS (2)
  1. SPRYCEL [Suspect]
     Indication: CHRONIC MYELOID LEUKAEMIA
     Dosage: STARTED AS 50MG IN SEP-OCT 2009 THEN TOOK 100MG JAN-FEB10,INTERRUPTED ON SEP10,RESTARTED ON OCT10
     Route: 048
     Dates: start: 20090901
  2. COLCHIMAX [Concomitant]
     Dates: end: 20100101

REACTIONS (3)
  - BLADDER DILATATION [None]
  - RECTAL CANCER [None]
  - URINARY RETENTION [None]
